FAERS Safety Report 24819956 (Version 1)
Quarter: 2025Q1

REPORT INFORMATION
  Report Type: Spontaneous
  Country: US (occurrence: None)
  Receive Date: 20250108
  Receipt Date: 20250108
  Transmission Date: 20250409
  Serious: Yes (Other)
  Sender: INFORLIFE
  Company Number: US-MLMSERVICE-20241226-PI324025-00150-1

PATIENT
  Age: 36 Year
  Sex: Male

DRUGS (4)
  1. BIKTARVY [Concomitant]
     Active Substance: BICTEGRAVIR SODIUM\EMTRICITABINE\TENOFOVIR ALAFENAMIDE FUMARATE
  2. TECOVIRIMAT [Concomitant]
     Active Substance: TECOVIRIMAT
  3. FLUCONAZOLE [Suspect]
     Active Substance: FLUCONAZOLE
     Indication: Oesophageal candidiasis
  4. GANCICLOVIR [Suspect]
     Active Substance: GANCICLOVIR
     Indication: Cytomegalovirus gastritis

REACTIONS (1)
  - Pancytopenia [Unknown]
